FAERS Safety Report 7928246-6 (Version None)
Quarter: 2011Q4

REPORT INFORMATION
  Report Type: 
  Country: None (occurrence: None)
  Receive Date: 20111118
  Receipt Date: 20111109
  Transmission Date: 20120403
  Serious: Yes (Hospitalization)
  Sender: FDA-Public Use
  Company Number: US-JNJFOC-20111005394

PATIENT
  Sex: Female
  Weight: 88.45 kg

DRUGS (4)
  1. USTEKINUMAB [Suspect]
     Indication: PSORIASIS
     Route: 058
     Dates: start: 20110225, end: 20110225
  2. COD LIVER OIL [Concomitant]
  3. FOLIC ACID [Concomitant]
  4. METHOTREXATE [Concomitant]

REACTIONS (9)
  - ANXIETY [None]
  - HEART RATE ABNORMAL [None]
  - DYSPNOEA [None]
  - BLOOD PRESSURE FLUCTUATION [None]
  - INJECTION SITE INDURATION [None]
  - CHEST DISCOMFORT [None]
  - THROAT TIGHTNESS [None]
  - TREMOR [None]
  - NERVOUSNESS [None]
